FAERS Safety Report 10680180 (Version 1)
Quarter: 2014Q4

REPORT INFORMATION
  Report Type: Spontaneous
  Country: SE (occurrence: SE)
  Receive Date: 20141229
  Receipt Date: 20141229
  Transmission Date: 20150529
  Serious: Yes (Life-Threatening)
  Sender: FDA-Public Use
  Company Number: SE-TEVA-530713ISR

PATIENT
  Age: 89 Year
  Sex: Female

DRUGS (11)
  1. TROMBYL [Concomitant]
     Active Substance: ASPIRIN
  2. MOVICOL [Concomitant]
     Active Substance: POLYETHYLENE GLYCOL 3350\POTASSIUM CHLORIDE\SODIUM BICARBONATE\SODIUM CHLORIDE
     Dosage: POWDER FOR ORAL SOLUTION IN SACHET
  3. GLYCERYL TRINITRATE [Concomitant]
     Active Substance: NITROGLYCERIN
  4. PANODIL [Concomitant]
     Active Substance: ACETAMINOPHEN
  5. METOPROLOL [Concomitant]
     Active Substance: METOPROLOL
  6. BRILIQUE [Concomitant]
     Active Substance: TICAGRELOR
  7. FEMANOR [Concomitant]
  8. NORSPAN [Concomitant]
     Active Substance: BUPRENORPHINE
  9. ATORVASTATIN TEVA 80 MG FILMDRAGERAD TABLETT [Suspect]
     Active Substance: ATORVASTATIN
     Dosage: 80 MILLIGRAM DAILY;
     Route: 048
     Dates: start: 20140728, end: 20141111
  10. VAGIFEM [Concomitant]
     Active Substance: ESTRADIOL
  11. STESOLID [Concomitant]
     Active Substance: DIAZEPAM

REACTIONS (2)
  - Rhabdomyolysis [Recovered/Resolved with Sequelae]
  - Acute kidney injury [Recovered/Resolved with Sequelae]

NARRATIVE: CASE EVENT DATE: 20141111
